FAERS Safety Report 13429887 (Version 1)
Quarter: 2017Q2

REPORT INFORMATION
  Report Type: Report from Study
  Country: DE (occurrence: DE)
  Receive Date: 20170412
  Receipt Date: 20170412
  Transmission Date: 20170830
  Serious: Yes (Death, Hospitalization)
  Sender: FDA-Public Use
  Company Number: DE-ROCHE-1054705

PATIENT
  Age: 52 Year
  Sex: Female
  Weight: 76 kg

DRUGS (4)
  1. BEVACIZUMAB [Suspect]
     Active Substance: BEVACIZUMAB
     Indication: BREAST CANCER
     Route: 042
     Dates: start: 20111208
  2. CAPECITABINE. [Concomitant]
     Active Substance: CAPECITABINE
     Indication: BREAST CANCER
     Dosage: 29/DEC/2011, 10/JAN/2012, 09/FEB/2012, 01/MAR/2012, 22/MAR/2012.
     Route: 048
     Dates: start: 20111208
  3. BEVACIZUMAB [Suspect]
     Active Substance: BEVACIZUMAB
     Route: 042
     Dates: start: 20120322
  4. BEVACIZUMAB [Suspect]
     Active Substance: BEVACIZUMAB
     Route: 042
     Dates: start: 20111229

REACTIONS (12)
  - Abdominal pain upper [Fatal]
  - Arthralgia [Unknown]
  - General physical health deterioration [Recovered/Resolved]
  - Somnolence [Recovered/Resolved]
  - Spinal pain [Recovered/Resolved]
  - General physical health deterioration [Fatal]
  - Personality change [Recovered/Resolved]
  - Memory impairment [Recovered/Resolved]
  - Personality change [Recovered/Resolved]
  - Abdominal pain upper [Not Recovered/Not Resolved]
  - Memory impairment [Recovered/Resolved]
  - Somnolence [Not Recovered/Not Resolved]

NARRATIVE: CASE EVENT DATE: 20120101
